FAERS Safety Report 13423381 (Version 3)
Quarter: 2017Q2

REPORT INFORMATION
  Report Type: Report from Study
  Country: DE (occurrence: DE)
  Receive Date: 20170410
  Receipt Date: 20170425
  Transmission Date: 20170830
  Serious: Yes (Death, Life-Threatening, Hospitalization)
  Sender: FDA-Public Use
  Company Number: DE-ROCHE-1915605

PATIENT
  Age: 53 Year
  Sex: Male
  Weight: 84 kg

DRUGS (5)
  1. RAMIPRIL. [Concomitant]
     Active Substance: RAMIPRIL
     Route: 065
     Dates: end: 201704
  2. SODIUM CHLORIDE. [Concomitant]
     Active Substance: SODIUM CHLORIDE
     Indication: TRANSITIONAL CELL CARCINOMA
     Route: 065
  3. ATEZOLIZUMAB [Suspect]
     Active Substance: ATEZOLIZUMAB
     Indication: TRANSITIONAL CELL CARCINOMA
     Route: 042
     Dates: start: 20170215, end: 20170412
  4. LYRICA [Concomitant]
     Active Substance: PREGABALIN
  5. NOVALGIN [Concomitant]
     Active Substance: METAMIZOLE SODIUM

REACTIONS (19)
  - Vomiting [Unknown]
  - Coagulation test abnormal [Unknown]
  - Hyperkalaemia [Not Recovered/Not Resolved]
  - Hepatic function abnormal [Unknown]
  - Hyponatraemia [Not Recovered/Not Resolved]
  - Decreased appetite [Not Recovered/Not Resolved]
  - Dyspepsia [Unknown]
  - Cardiac arrest [Fatal]
  - Gamma-glutamyltransferase increased [Not Recovered/Not Resolved]
  - Renal impairment [Unknown]
  - Oedema peripheral [Unknown]
  - Multiple organ dysfunction syndrome [Fatal]
  - Adrenal insufficiency [Not Recovered/Not Resolved]
  - C-reactive protein increased [Not Recovered/Not Resolved]
  - General physical health deterioration [Not Recovered/Not Resolved]
  - Aspartate aminotransferase increased [Not Recovered/Not Resolved]
  - Hypervolaemia [Not Recovered/Not Resolved]
  - Blood electrolytes abnormal [Not Recovered/Not Resolved]
  - Generalised oedema [Unknown]

NARRATIVE: CASE EVENT DATE: 20170330
